FAERS Safety Report 8115728-X (Version None)
Quarter: 2012Q1

REPORT INFORMATION
  Report Type: 
  Country: None (occurrence: None)
  Receive Date: 20120201
  Receipt Date: 20120120
  Transmission Date: 20120608
  Serious: Yes (Life-Threatening)
  Sender: FDA-Public Use
  Company Number: GER/ITL/12/0022788

PATIENT
  Age: 45 Year
  Sex: Male

DRUGS (2)
  1. CLOPIDEGREL [Suspect]
     Indication: ISCHAEMIC HEART DISEASE PROPHYLAXIS
     Dosage: 75 MG, ORAL
     Route: 048
     Dates: start: 20111207, end: 20120113
  2. ASPIRIN [Suspect]
     Indication: ANTIPLATELET THERAPY

REACTIONS (2)
  - ACUTE MYOCARDIAL INFARCTION [None]
  - THROMBOSIS IN DEVICE [None]
